FAERS Safety Report 22619494 (Version 1)
Quarter: 2023Q2

REPORT INFORMATION
  Report Type: Spontaneous
  Country: US (occurrence: None)
  Receive Date: 20230620
  Receipt Date: 20230620
  Transmission Date: 20230721
  Serious: Yes (Other)
  Sender: FDA-Public Use
  Company Number: US-ROCHE-3367282

PATIENT
  Sex: Male
  Weight: 19.8 kg

DRUGS (1)
  1. AVASTIN [Suspect]
     Active Substance: BEVACIZUMAB
     Indication: Astrocytoma
     Dosage: NO
     Route: 042

REACTIONS (11)
  - Tumour haemorrhage [Unknown]
  - Neoplasm progression [Unknown]
  - Tumour necrosis [Unknown]
  - Macrocytosis [Unknown]
  - Red blood cell count increased [Unknown]
  - Cognitive disorder [Unknown]
  - Staphylococcal infection [Unknown]
  - Rash [Unknown]
  - Cerebral calcification [Unknown]
  - Off label use [Unknown]
  - Off label use [Unknown]
